FAERS Safety Report 6424754-8 (Version None)
Quarter: 2009Q4

REPORT INFORMATION
  Report Type: 
  Country: None (occurrence: None)
  Receive Date: 20091030
  Receipt Date: 20091030
  Transmission Date: 20100525
  Serious: Yes (Hospitalization)
  Sender: FDA-Public Use
  Company Number: None

PATIENT
  Age: 62 Year
  Sex: Male
  Weight: 116.4 kg

DRUGS (2)
  1. IOPROMIDE [Suspect]
     Indication: COMPUTERISED TOMOGRAM
     Dosage: 90 ML ONCE IV
     Route: 042
     Dates: start: 20080908, end: 20080908
  2. DIATRIZOATE MEGLUMINE [Suspect]
     Indication: COMPUTERISED TOMOGRAM
     Dosage: 5.25 GM ONCE PO
     Route: 048
     Dates: start: 20080908, end: 20080908

REACTIONS (2)
  - CHEST DISCOMFORT [None]
  - URTICARIA [None]
